FAERS Safety Report 13192244 (Version 2)
Quarter: 2017Q1

REPORT INFORMATION
  Report Type: Spontaneous
  Country: JP (occurrence: JP)
  Receive Date: 20170207
  Receipt Date: 20170216
  Transmission Date: 20170428
  Serious: No
  Sender: FDA-Public Use
  Company Number: JP-ASTRAZENECA-2017SE13540

PATIENT
  Age: 66 Year
  Sex: Female

DRUGS (1)
  1. FASLODEX [Suspect]
     Active Substance: FULVESTRANT
     Indication: BREAST CANCER FEMALE
     Dosage: DOSE AND FREQUENCY UNKNOWN
     Route: 030
     Dates: start: 201611

REACTIONS (1)
  - No adverse event [Unknown]
